FAERS Safety Report 12802030 (Version 1)
Quarter: 2016Q4

REPORT INFORMATION
  Report Type: Spontaneous
  Country: US (occurrence: US)
  Receive Date: 20161003
  Receipt Date: 20161003
  Transmission Date: 20170207
  Serious: No
  Sender: FDA-Public Use
  Company Number: US-JAZZ-2016-US-012121

PATIENT
  Sex: Male

DRUGS (47)
  1. ARNUITY ELLIPTA [Concomitant]
     Active Substance: FLUTICASONE FUROATE
  2. FLUTICASONE PROPIONATE. [Concomitant]
     Active Substance: FLUTICASONE PROPIONATE
  3. DRONABINOL. [Concomitant]
     Active Substance: DRONABINOL
  4. POTASSIUM [Concomitant]
     Active Substance: POTASSIUM
  5. GREEN TEA EXTRACT [Concomitant]
  6. ULTIMATECARE ONE NF [Concomitant]
     Active Substance: .ALPHA.-TOCOPHEROL ACETATE, DL-\BIOTIN\CALCIUM\CALCIUM ASCORBATE\CALCIUM THREONATE\CHOLECALCIFEROL\DOCONEXENT\DOCUSATE SODIUM\FERROUS ASPARTO GLYCINATE\FOLIC ACID\ICOSAPENT\IODINE\IRON\LINOLENIC ACID\MAGNESIUM OXIDE\NIACINAMIDE\OMEGA-3 FATTY ACIDS\PYRIDOXINE HYDROCHLORIDE\RIBOFLAVIN\ZINC OXIDE
  7. OXCARBAZEPINE. [Concomitant]
     Active Substance: OXCARBAZEPINE
  8. DULOXETINE HCL [Concomitant]
     Active Substance: DULOXETINE HYDROCHLORIDE
  9. VIAGRA [Concomitant]
     Active Substance: SILDENAFIL CITRATE
  10. XYREM [Suspect]
     Active Substance: SODIUM OXYBATE
     Dosage: 3 G, TID
     Route: 048
     Dates: start: 201301
  11. MORPHINE SULF [Concomitant]
     Active Substance: MORPHINE SULFATE
  12. HYDROMORPHONE HCL [Concomitant]
     Active Substance: HYDROMORPHONE HYDROCHLORIDE
  13. LIDODERM [Concomitant]
     Active Substance: LIDOCAINE
  14. FINASTERIDE. [Concomitant]
     Active Substance: FINASTERIDE
  15. TESTOSTERONE. [Concomitant]
     Active Substance: TESTOSTERONE
  16. XYREM [Suspect]
     Active Substance: SODIUM OXYBATE
     Dosage: DOSE ADJUSTMENTS
     Route: 048
     Dates: start: 200510, end: 200702
  17. PANTOPRAZOLE SODIUM. [Concomitant]
     Active Substance: PANTOPRAZOLE SODIUM
  18. CIPROFLOXACIN. [Concomitant]
     Active Substance: CIPROFLOXACIN
  19. OMEPRAZOLE. [Concomitant]
     Active Substance: OMEPRAZOLE
  20. SYMBICORT [Concomitant]
     Active Substance: BUDESONIDE\FORMOTEROL FUMARATE DIHYDRATE
  21. VENTOLIN HFA [Concomitant]
     Active Substance: ALBUTEROL SULFATE
  22. MULTIVITAMINS [Concomitant]
     Active Substance: VITAMINS
  23. BACLOFEN. [Concomitant]
     Active Substance: BACLOFEN
  24. LYRICA [Concomitant]
     Active Substance: PREGABALIN
  25. TAMSULOSIN HCL [Concomitant]
     Active Substance: TAMSULOSIN
  26. AMLODIPINE BESYLATE. [Concomitant]
     Active Substance: AMLODIPINE BESYLATE
  27. MIRALAX [Concomitant]
     Active Substance: POLYETHYLENE GLYCOL 3350
  28. LISINOPRIL. [Concomitant]
     Active Substance: LISINOPRIL
  29. XYREM [Suspect]
     Active Substance: SODIUM OXYBATE
     Dosage: 4.5 G, BID
     Route: 048
     Dates: start: 200702, end: 2008
  30. LEVOFLOXACIN. [Concomitant]
     Active Substance: LEVOFLOXACIN
  31. GLUCOSAMINE [Concomitant]
     Active Substance: GLUCOSAMINE
  32. FLUCONAZOLE. [Concomitant]
     Active Substance: FLUCONAZOLE
  33. ASPIRIN. [Concomitant]
     Active Substance: ASPIRIN
  34. AZELASTINE [Concomitant]
     Active Substance: AZELASTINE
  35. OXYGEN. [Concomitant]
     Active Substance: OXYGEN
  36. XYREM [Suspect]
     Active Substance: SODIUM OXYBATE
     Dosage: 4.5 G, BID
     Route: 048
     Dates: start: 201202, end: 201301
  37. ALPRAZOLAM. [Concomitant]
     Active Substance: ALPRAZOLAM
  38. LEVOTHYROXINE SODIUM. [Concomitant]
     Active Substance: LEVOTHYROXINE SODIUM
  39. CYANOCOBALAMIN. [Concomitant]
     Active Substance: CYANOCOBALAMIN
  40. ALLERGY [Concomitant]
     Active Substance: UNSPECIFIED INGREDIENT
  41. COENZYME Q10 [Concomitant]
     Active Substance: UBIDECARENONE
  42. DURAMORPH [Concomitant]
     Active Substance: MORPHINE SULFATE
  43. OXYCODONE [Concomitant]
     Active Substance: OXYCODONE
  44. ONDANSETRON HCL [Concomitant]
     Active Substance: ONDANSETRON HYDROCHLORIDE
  45. XYREM [Suspect]
     Active Substance: SODIUM OXYBATE
     Indication: NARCOLEPSY
     Dosage: 4 G, BID
     Route: 048
     Dates: start: 200506, end: 200509
  46. SINGULAIR [Concomitant]
     Active Substance: MONTELUKAST SODIUM
  47. FUROSEMIDE. [Concomitant]
     Active Substance: FUROSEMIDE

REACTIONS (1)
  - Oropharyngeal pain [Not Recovered/Not Resolved]
